FAERS Safety Report 4798039-X (Version None)
Quarter: 2005Q3

REPORT INFORMATION
  Report Type: 
  Country: None (occurrence: None)
  Receive Date: 20050929
  Receipt Date: 20050818
  Transmission Date: 20060218
  Serious: No
  Sender: FDA-Public Use
  Company Number: 05P-163-0308575

PATIENT
  Age: 63 Year
  Sex: Female
  Weight: 101.5 kg

DRUGS (12)
  1. HUMIRA [Suspect]
     Indication: RHEUMATOID ARTHRITIS
     Dosage: 40 MG, 1 IN 2 WK, SUBCUTANEOUS
     Route: 058
     Dates: start: 20040201
  2. PREDNISONE [Concomitant]
  3. NAPROXEN [Concomitant]
  4. MULTI-VITAMINS [Concomitant]
  5. HYDROCHLOROTHIAZIDE [Concomitant]
  6. LEXAPRO [Concomitant]
  7. DILTIAZEM HYDROCHLORIDE [Concomitant]
  8. METHOTREXATE [Concomitant]
  9. VICODIN [Concomitant]
  10. OMEPRAZOLE [Concomitant]
  11. FUROSEMIDE [Concomitant]
  12. ALENDRONATE SODIUM [Concomitant]

REACTIONS (3)
  - CHEST PAIN [None]
  - DYSPNOEA [None]
  - LUNG DISORDER [None]
